FAERS Safety Report 19470165 (Version 2)
Quarter: 2021Q3

REPORT INFORMATION
  Report Type: Report from Study
  Country: US (occurrence: US)
  Receive Date: 20210628
  Receipt Date: 20210715
  Transmission Date: 20211014
  Serious: No
  Sender: FDA-Public Use
  Company Number: US-BRISTOL-MYERS SQUIBB COMPANY-BMS-2021-060806

PATIENT
  Age: 78 Year
  Sex: Male
  Weight: 92.9 kg

DRUGS (1)
  1. APIXABAN [Suspect]
     Active Substance: APIXABAN
     Indication: ATRIAL FLUTTER
     Dosage: 5 MILLIGRAM, BID
     Route: 048
     Dates: start: 202105, end: 20210608

REACTIONS (1)
  - Blood urine present [Recovered/Resolved]
